FAERS Safety Report 21739415 (Version 3)
Quarter: 2023Q1

REPORT INFORMATION
  Report Type: Spontaneous
  Country: JP (occurrence: JP)
  Receive Date: 20221216
  Receipt Date: 20230131
  Transmission Date: 20230418
  Serious: Yes (Life-Threatening, Hospitalization, Disabling, Other)
  Sender: FDA-Public Use
  Company Number: JP-GSKNCCC-Case-01631276_AE-65335

PATIENT

DRUGS (30)
  1. LAMICTAL [Suspect]
     Active Substance: LAMOTRIGINE
     Indication: Epilepsy
     Dosage: 1 MG, QD
     Dates: start: 20190128
  2. LAMICTAL [Suspect]
     Active Substance: LAMOTRIGINE
     Dosage: 3 MG, BID (2 MG IN THE MORNING, 1 MG IN THE EVENING)
     Dates: start: 20190716
  3. LAMICTAL [Suspect]
     Active Substance: LAMOTRIGINE
     Dosage: 2 MG, BID
     Dates: start: 20190820
  4. LAMICTAL [Suspect]
     Active Substance: LAMOTRIGINE
     Dosage: 5 MG, BID (3 MG IN THE MORNING, 2 MG IN THE EVENING)
     Dates: start: 20191029
  5. LAMICTAL [Suspect]
     Active Substance: LAMOTRIGINE
     Dosage: 3 MG, BID
     Dates: start: 20191217
  6. LAMICTAL [Suspect]
     Active Substance: LAMOTRIGINE
     Dosage: 4 MG, BID
     Dates: start: 20200218
  7. LAMICTAL [Suspect]
     Active Substance: LAMOTRIGINE
     Dosage: 5 MG, BID
     Dates: start: 20200609
  8. LAMICTAL [Suspect]
     Active Substance: LAMOTRIGINE
     Dosage: 6 MG, BID
     Dates: start: 20201013
  9. LAMICTAL [Suspect]
     Active Substance: LAMOTRIGINE
     Dosage: 7 MG, BID
     Dates: start: 20201208
  10. LAMICTAL [Suspect]
     Active Substance: LAMOTRIGINE
     Dosage: 8 MG, BID
     Dates: start: 20210413
  11. LAMICTAL [Suspect]
     Active Substance: LAMOTRIGINE
     Dosage: 9 MG, BID
     Dates: start: 20210608
  12. LAMICTAL [Suspect]
     Active Substance: LAMOTRIGINE
     Dosage: 10 MG, BID
     Dates: start: 20210810
  13. LAMICTAL [Suspect]
     Active Substance: LAMOTRIGINE
     Dosage: 22 MG, BID (12 MG IN THE MORNING, 10 MG IN THE EVENING)
     Dates: start: 20211012
  14. LAMICTAL [Suspect]
     Active Substance: LAMOTRIGINE
     Dosage: 26 MG, BID (14 MG IN THE MORNING, 12 MG IN THE EVENING)
     Dates: start: 20211110
  15. LAMICTAL [Suspect]
     Active Substance: LAMOTRIGINE
     Dosage: 26 MG, BID (12 MG IN THE MORNING, 14 MG IN THE EVENING)
     Dates: start: 20211214
  16. LAMICTAL [Suspect]
     Active Substance: LAMOTRIGINE
     Dosage: 34 MG, BID (16 MG IN THE MORNING, 18 MG IN THE EVENING)
     Dates: start: 20220112
  17. LAMICTAL [Suspect]
     Active Substance: LAMOTRIGINE
     Dosage: 10 MG, BID
     Dates: start: 20220208
  18. LAMICTAL [Suspect]
     Active Substance: LAMOTRIGINE
     Dosage: 17 MG, BID
     Dates: start: 20220420
  19. LAMICTAL [Suspect]
     Active Substance: LAMOTRIGINE
     Dosage: 19 MG, BID
     Dates: start: 20220809
  20. LAMICTAL [Suspect]
     Active Substance: LAMOTRIGINE
     Dosage: 20 MG, BID
     Dates: start: 20221011
  21. LAMICTAL [Suspect]
     Active Substance: LAMOTRIGINE
     Dosage: 10 MG, BID
     Dates: start: 20221128, end: 20221202
  22. URSO [Concomitant]
     Active Substance: URSODIOL
     Dosage: UNK
  23. MOSAPRIDE CITRATE [Concomitant]
     Active Substance: MOSAPRIDE CITRATE
     Dosage: UNK
  24. TIZANIDINE HYDROCHLORIDE [Concomitant]
     Active Substance: TIZANIDINE HYDROCHLORIDE
     Dosage: UNK
     Dates: end: 20221125
  25. VONOPRAZAN FUMARATE [Concomitant]
     Active Substance: VONOPRAZAN FUMARATE
     Dosage: UNK
  26. ROZEREM [Concomitant]
     Active Substance: RAMELTEON
     Dosage: UNK
  27. PHENOBARBITAL [Concomitant]
     Active Substance: PHENOBARBITAL
     Dosage: UNK
  28. FLUNITRAZEPAM [Concomitant]
     Active Substance: FLUNITRAZEPAM
     Dosage: UNK
  29. LAC-B (BIFIDOBACTERIUM INFANTIS + BIFIDOBACTERIUM LONGUM) [Concomitant]
     Dosage: UNK
  30. TRICLORYL SYRUP [Concomitant]
     Dosage: UNK

REACTIONS (5)
  - Bradycardia [Recovered/Resolved]
  - Atrioventricular block second degree [Recovered/Resolved]
  - Brain natriuretic peptide increased [Recovered/Resolved]
  - Jaundice cholestatic [Unknown]
  - Condition aggravated [Recovered/Resolved]

NARRATIVE: CASE EVENT DATE: 20200901
